FAERS Safety Report 5476766-9 (Version None)
Quarter: 2007Q4

REPORT INFORMATION
  Report Type: 
  Country: None (occurrence: None)
  Receive Date: 20071004
  Receipt Date: 20070927
  Transmission Date: 20080405
  Serious: Yes (Hospitalization)
  Sender: FDA-Public Use
  Company Number: FR-JNJFOC-20071000054

PATIENT
  Sex: Female

DRUGS (2)
  1. REMINYL [Suspect]
     Indication: DEMENTIA ALZHEIMER'S TYPE
     Route: 048
  2. MIRTAZAPINE [Suspect]
     Indication: DEPRESSION
     Route: 048

REACTIONS (4)
  - CONFUSIONAL STATE [None]
  - HYPOTONIA [None]
  - ORTHOSTATIC HYPOTENSION [None]
  - SYNCOPE VASOVAGAL [None]
